FAERS Safety Report 13258291 (Version 1)
Quarter: 2017Q1

REPORT INFORMATION
  Report Type: Spontaneous
  Country: FR (occurrence: FR)
  Receive Date: 20170222
  Receipt Date: 20170222
  Transmission Date: 20170428
  Serious: Yes (Hospitalization, Other)
  Sender: FDA-Public Use
  Company Number: FR-ASTRAZENECA-2017SE18406

PATIENT
  Age: 16467 Day
  Sex: Male

DRUGS (7)
  1. HALDOL [Suspect]
     Active Substance: HALOPERIDOL
     Route: 048
     Dates: start: 20161116
  2. ZOLPIDEM [Concomitant]
     Active Substance: ZOLPIDEM\ZOLPIDEM TARTRATE
  3. LARGACTIL [Concomitant]
     Active Substance: CHLORPROMAZINE
     Dates: start: 20161116
  4. HALDOL [Suspect]
     Active Substance: HALOPERIDOL
     Route: 048
  5. LARGACTIL [Concomitant]
     Active Substance: CHLORPROMAZINE
     Dosage: 100 MG OR 200 MG PER DAY
  6. XEROQUEL [Suspect]
     Active Substance: QUETIAPINE FUMARATE
     Route: 048
     Dates: start: 20161108
  7. HALDOL [Suspect]
     Active Substance: HALOPERIDOL
     Route: 048
     Dates: start: 20161210

REACTIONS (4)
  - Loss of consciousness [Unknown]
  - Fall [Unknown]
  - Rhabdomyolysis [Recovered/Resolved]
  - Blood creatinine increased [Unknown]

NARRATIVE: CASE EVENT DATE: 20161107
